FAERS Safety Report 5299675-7 (Version None)
Quarter: 2007Q2

REPORT INFORMATION
  Report Type: 
  Country: None (occurrence: None)
  Receive Date: 20070410
  Receipt Date: 20070329
  Transmission Date: 20071010
  Serious: Yes (Life-Threatening)
  Sender: FDA-Public Use
  Company Number: GXKR2007CH03019

PATIENT
  Age: 72 Year
  Sex: Male
  Weight: 91 kg

DRUGS (9)
  1. LISITRIL (NGX)(LISINOPRIL0 TABLET, 10MG [Suspect]
     Indication: CARDIAC FAILURE
     Dosage: 10 MG, QD, ORAL
     Route: 048
     Dates: end: 20070316
  2. METOPROLOL SUCCINATE [Suspect]
     Indication: MYOCARDIAL ISCHAEMIA
     Dosage: 50 MG, QD, ORAL
     Route: 048
     Dates: start: 20060101, end: 20070316
  3. XENALON(SPIRONOLACTONE) TABLET, 50MG [Suspect]
     Indication: CARDIAC FAILURE
     Dosage: 50 MG, QD, ORAL
     Route: 048
     Dates: start: 20070216, end: 20070316
  4. TORSEMIDE [Suspect]
     Indication: CARDIAC FAILURE
     Dosage: 10 MG, QD, ORAL
     Route: 048
     Dates: end: 20070316
  5. SINTROM [Concomitant]
  6. ASPIRIN CARDIO (ACETYLSALICYLIC ACID) FILM-COATED TABLET [Concomitant]
  7. LORAZEPAM [Concomitant]
  8. TIOTROPIUM BROMIDE (TIOTROPIUM BROMIDE) [Concomitant]
  9. SEREVENT [Concomitant]

REACTIONS (10)
  - ACUTE PRERENAL FAILURE [None]
  - DIARRHOEA [None]
  - DYSSTASIA [None]
  - ELECTROCARDIOGRAM QRS COMPLEX PROLONGED [None]
  - FALL [None]
  - HYPERKALAEMIA [None]
  - HYPOTENSION [None]
  - REFUSAL OF TREATMENT BY PATIENT [None]
  - RENAL FAILURE ACUTE [None]
  - SINUS BRADYCARDIA [None]
